FAERS Safety Report 7070914-5 (Version None)
Quarter: 2010Q4

REPORT INFORMATION
  Report Type: 
  Country: None (occurrence: None)
  Receive Date: 20101029
  Receipt Date: 20101018
  Transmission Date: 20110411
  Serious: Yes (Hospitalization)
  Sender: FDA-Public Use
  Company Number: PHHY2010VE69587

PATIENT
  Age: 61 Year
  Sex: Female

DRUGS (3)
  1. ACLASTA [Suspect]
     Dosage: 5 MG
     Route: 042
  2. REUMARTRIT [Suspect]
     Indication: OSTEOARTHRITIS
  3. STEROIDS NOS [Concomitant]
     Dosage: 30 MG

REACTIONS (1)
  - STEROID WITHDRAWAL SYNDROME [None]
